APPROVED DRUG PRODUCT: METOLAZONE
Active Ingredient: METOLAZONE
Strength: 10MG
Dosage Form/Route: TABLET;ORAL
Application: A076466 | Product #002 | TE Code: AB
Applicant: SANDOZ INC
Approved: Dec 19, 2003 | RLD: No | RS: Yes | Type: RX